FAERS Safety Report 7399746-5 (Version None)
Quarter: 2011Q2

REPORT INFORMATION
  Report Type: 
  Country: None (occurrence: None)
  Receive Date: 20110407
  Receipt Date: 20110310
  Transmission Date: 20111010
  Serious: Yes (Hospitalization)
  Sender: FDA-Public Use
  Company Number: US-BAYER-201028792NA

PATIENT
  Sex: Female
  Weight: 86.168 kg

DRUGS (10)
  1. MOTRIN [Concomitant]
     Dosage: 1 TALBET EVERY 8 HOURS IF NEEDED
     Route: 065
     Dates: start: 20030908
  2. LASIX [Concomitant]
     Dosage: 20 MG, QD
     Route: 065
     Dates: start: 20080524
  3. ASCORBIC ACID [Concomitant]
     Route: 065
  4. ESTRADIOL [Concomitant]
  5. ALDACTONE [Concomitant]
     Dosage: 25 MG, UNK
     Route: 048
  6. YAZ [Suspect]
     Indication: PRODUCT USED FOR UNKNOWN INDICATION
     Route: 065
  7. YASMIN [Suspect]
     Indication: CONTRACEPTION
     Dosage: 1 TABLET PER DAY. 12 SAMPLES RECEIVED FROM PHYSICIAN
     Route: 065
     Dates: start: 20070101, end: 20080515
  8. OCELLA [Suspect]
     Indication: PRODUCT USED FOR UNKNOWN INDICATION
     Route: 065
  9. HYDROCHLOROTHIAZIDE [Concomitant]
     Route: 065
     Dates: start: 20080101
  10. SYNTHROID [Concomitant]
     Indication: THYROID DISORDER
     Dosage: 15 MG, UNK
     Route: 048
     Dates: start: 20080524

REACTIONS (4)
  - INJURY [None]
  - OEDEMA PERIPHERAL [None]
  - PULMONARY EMBOLISM [None]
  - DEEP VEIN THROMBOSIS [None]
